FAERS Safety Report 10462953 (Version 1)
Quarter: 2014Q3

REPORT INFORMATION
  Report Type: Report from Study
  Country: JP (occurrence: JP)
  Receive Date: 20140918
  Receipt Date: 20140918
  Transmission Date: 20150326
  Serious: Yes (Other)
  Sender: FDA-Public Use
  Company Number: JP-ASTRAZENECA-2014SE68621

PATIENT
  Age: 83 Year
  Sex: Male

DRUGS (3)
  1. ZORADEX [Suspect]
     Active Substance: GOSERELIN
     Indication: PROSTATE CANCER METASTATIC
     Dosage: 10.8 MG DAY 8 AND EVERY 12 WEEKS THEREAFTER
     Route: 058
  2. CASODEX [Suspect]
     Active Substance: BICALUTAMIDE
     Indication: PROSTATE CANCER METASTATIC
     Route: 048
  3. ZOMETA [Suspect]
     Active Substance: ZOLEDRONIC ACID
     Indication: PROSTATE CANCER METASTATIC
     Dosage: 4 MG DAY 8 AND EVERY 4 WEEKS THEREAFTER
     Route: 042

REACTIONS (1)
  - Spinal cord compression [Unknown]
